FAERS Safety Report 4387923-7 (Version None)
Quarter: 2004Q2

REPORT INFORMATION
  Report Type: 
  Country: None (occurrence: None)
  Receive Date: 20040607
  Receipt Date: 20031215
  Transmission Date: 20050107
  Serious: Yes (Other)
  Sender: FDA-Public Use
  Company Number: 354259

PATIENT

DRUGS (5)
  1. ACCUTANE [Suspect]
     Indication: ACNE
     Dates: start: 20030310, end: 20031010
  2. . [Concomitant]
     Dosage: NA
  3. ORAL CONTRACEPTIVE PILL (ORAL CONTRACEPTIVE PILL) [Concomitant]
  4. DEPO-PROVERA [Concomitant]
  5. LUNELLE (ESTRADIOL CYPIONATE/MEDROXYPROGESTERONE ACETATE) [Concomitant]

REACTIONS (3)
  - ABORTION SPONTANEOUS [None]
  - DRUG EXPOSURE DURING PREGNANCY [None]
  - PREGNANCY [None]
